FAERS Safety Report 7787567-0 (Version None)
Quarter: 2011Q3

REPORT INFORMATION
  Report Type: 
  Country: None (occurrence: None)
  Receive Date: 20110929
  Receipt Date: 20110923
  Transmission Date: 20111222
  Serious: Yes (Other)
  Sender: FDA-Public Use
  Company Number: US-AMGEN-USASP2011049644

PATIENT
  Sex: Male

DRUGS (4)
  1. PLATELETS [Concomitant]
     Indication: PLATELET COUNT DECREASED
  2. NPLATE [Suspect]
     Indication: IDIOPATHIC THROMBOCYTOPENIC PURPURA
     Dosage: UNK
     Dates: start: 20110825
  3. METOPROLOL TARTRATE [Concomitant]
     Dosage: 12.5 MG, QD
  4. NPLATE [Suspect]
     Indication: MYELODYSPLASTIC SYNDROME

REACTIONS (6)
  - PALPITATIONS [None]
  - CHEST PAIN [None]
  - DYSPNOEA [None]
  - DISTURBANCE IN ATTENTION [None]
  - FATIGUE [None]
  - ANAEMIA [None]
